FAERS Safety Report 5865588-2 (Version None)
Quarter: 2008Q3

REPORT INFORMATION
  Report Type: 
  Country: None (occurrence: None)
  Receive Date: 20080829
  Receipt Date: 20080812
  Transmission Date: 20090109
  Serious: No
  Sender: FDA-Public Use
  Company Number: US-ABBOTT-08P-163-0470537-00

PATIENT
  Sex: Male

DRUGS (18)
  1. SIMCOR [Suspect]
     Indication: DRUG USE FOR UNKNOWN INDICATION
     Dosage: 500/20MG (UNIT DOSE)
  2. NORTRIPTYLINE HCL [Concomitant]
     Indication: DRUG USE FOR UNKNOWN INDICATION
  3. BIATIN [Concomitant]
     Indication: DRUG USE FOR UNKNOWN INDICATION
  4. IRBESARTAN AND HYDROCHLOROTHIAZIDE [Concomitant]
     Indication: DRUG USE FOR UNKNOWN INDICATION
  5. OMEPREZOLE [Concomitant]
     Indication: DRUG USE FOR UNKNOWN INDICATION
  6. PREGABALIN [Concomitant]
     Indication: DRUG USE FOR UNKNOWN INDICATION
  7. MODAFINIL [Concomitant]
     Indication: DRUG USE FOR UNKNOWN INDICATION
  8. ACETYLSALICYLIC ACID SRT [Concomitant]
     Indication: DRUG USE FOR UNKNOWN INDICATION
  9. TEMAZEPAM [Concomitant]
     Indication: DRUG USE FOR UNKNOWN INDICATION
  10. RISPERDAL [Concomitant]
     Indication: DRUG USE FOR UNKNOWN INDICATION
  11. GLUCOSAMINE [Concomitant]
     Indication: DRUG USE FOR UNKNOWN INDICATION
  12. FAXSEED [Concomitant]
     Indication: DRUG USE FOR UNKNOWN INDICATION
  13. ASCORBIC ACID [Concomitant]
     Indication: DRUG USE FOR UNKNOWN INDICATION
  14. ALUDROX [Concomitant]
     Indication: DRUG USE FOR UNKNOWN INDICATION
  15. PRASTERONE [Concomitant]
     Indication: DRUG USE FOR UNKNOWN INDICATION
  16. POLYCARBOPHIL CALCIUM [Concomitant]
     Indication: DRUG USE FOR UNKNOWN INDICATION
  17. VIGRAN [Concomitant]
     Indication: DRUG USE FOR UNKNOWN INDICATION
  18. CINNAMOMUM VERUM [Concomitant]
     Indication: DRUG USE FOR UNKNOWN INDICATION

REACTIONS (1)
  - FLUSHING [None]
